FAERS Safety Report 18009627 (Version 4)
Quarter: 2025Q2

REPORT INFORMATION
  Report Type: Spontaneous
  Country: JP (occurrence: JP)
  Receive Date: 20200710
  Receipt Date: 20250510
  Transmission Date: 20250717
  Serious: Yes (Death)
  Sender: JAZZ
  Company Number: JP-JAZZ-2019-JP-015432

PATIENT
  Age: 37 Year
  Sex: Male
  Weight: 63.9 kg

DRUGS (6)
  1. DEFITELIO [Suspect]
     Active Substance: DEFIBROTIDE SODIUM
     Indication: Venoocclusive liver disease
     Route: 042
     Dates: start: 20191016, end: 20191105
  2. TACROLIMUS [Concomitant]
     Active Substance: TACROLIMUS
     Indication: Prophylaxis against graft versus host disease
     Dates: start: 2019, end: 2019
  3. TACROLIMUS [Concomitant]
     Active Substance: TACROLIMUS
     Dates: start: 2019
  4. METHYLPREDNISOLONE [Concomitant]
     Active Substance: METHYLPREDNISOLONE
     Indication: Product used for unknown indication
     Dates: start: 201910, end: 2019
  5. METHYLPREDNISOLONE [Concomitant]
     Active Substance: METHYLPREDNISOLONE
     Dates: start: 2019
  6. CARPERITIDE [Concomitant]
     Active Substance: CARPERITIDE
     Indication: Product used for unknown indication
     Dates: start: 201910

REACTIONS (2)
  - Acute myeloid leukaemia [Fatal]
  - Haemorrhage subcutaneous [Recovered/Resolved]

NARRATIVE: CASE EVENT DATE: 20191023
